FAERS Safety Report 4317398-5 (Version None)
Quarter: 2004Q1

REPORT INFORMATION
  Report Type: 
  Country: None (occurrence: None)
  Receive Date: 20040312
  Receipt Date: 20040108
  Transmission Date: 20041129
  Serious: Yes (Hospitalization, Other)
  Sender: FDA-Public Use
  Company Number: KII-2004-0007978

PATIENT
  Age: 41 Year
  Sex: Male

DRUGS (8)
  1. MORPHINE SULFATE [Suspect]
  2. BENZODIAZEPINE DERIVATIVES [Suspect]
  3. TRAZODONE HCL [Suspect]
  4. ANTIHISTAMINES FOR SYSTEMIC USE [Suspect]
  5. METHADONE HCL [Suspect]
  6. AMPHETAMINE SULFATE TAB [Suspect]
  7. ANTIEPILEPTICS [Concomitant]
  8. ANTIPSYCHOTICS [Concomitant]

REACTIONS (6)
  - COMA [None]
  - INTENTIONAL OVERDOSE [None]
  - INTENTIONAL SELF-INJURY [None]
  - MIOSIS [None]
  - MULTIPLE DRUG OVERDOSE [None]
  - RESPIRATION ABNORMAL [None]
